FAERS Safety Report 25811649 (Version 1)
Quarter: 2025Q3

REPORT INFORMATION
  Report Type: Spontaneous
  Country: US (occurrence: US)
  Receive Date: 20250917
  Receipt Date: 20250917
  Transmission Date: 20251021
  Serious: Yes (Other)
  Sender: CHEPLAPHARM
  Company Number: US-CHEPLA-2025010870

PATIENT
  Age: 65 Year
  Sex: Male

DRUGS (3)
  1. HYDROXYUREA [Suspect]
     Active Substance: HYDROXYUREA
  2. JAKAFI [Suspect]
     Active Substance: RUXOLITINIB
     Indication: Myelofibrosis
     Route: 048
  3. ANAGRELIDE [Suspect]
     Active Substance: ANAGRELIDE

REACTIONS (4)
  - Cardiac failure congestive [Unknown]
  - Loss of consciousness [Unknown]
  - Temperature intolerance [Unknown]
  - Heat stroke [Unknown]
